FAERS Safety Report 18504431 (Version 1)
Quarter: 2020Q4

REPORT INFORMATION
  Report Type: Report from Study
  Country: None (occurrence: CL)
  Receive Date: 20201113
  Receipt Date: 20201113
  Transmission Date: 20210114
  Serious: Yes (Other)
  Sender: FDA-Public Use
  Company Number: CL-ABBVIE-20K-034-3523385-00

PATIENT
  Age: 65 Year
  Sex: Female

DRUGS (1)
  1. HUMIRA [Suspect]
     Active Substance: ADALIMUMAB
     Indication: RHEUMATOID ARTHRITIS
     Route: 058
     Dates: start: 20190515, end: 202002

REACTIONS (4)
  - Neoplasm malignant [Not Recovered/Not Resolved]
  - Limb mass [Unknown]
  - Colon neoplasm [Unknown]
  - Neoplasm skin [Unknown]

NARRATIVE: CASE EVENT DATE: 202008
